FAERS Safety Report 18517872 (Version 1)
Quarter: 2020Q4

REPORT INFORMATION
  Report Type: Report from Study
  Country: FR (occurrence: FR)
  Receive Date: 20201118
  Receipt Date: 20201118
  Transmission Date: 20210114
  Serious: Yes (Life-Threatening, Hospitalization, Disabling)
  Sender: FDA-Public Use
  Company Number: FR-PFIZER INC-2020451978

PATIENT
  Weight: 12.6 kg

DRUGS (14)
  1. TAZOCILLINE [Concomitant]
     Active Substance: PIPERACILLIN SODIUM\TAZOBACTAM SODIUM
     Indication: STREPTOCOCCAL BACTERAEMIA
     Dosage: 400 MG/KG, 1X/DAY
     Dates: start: 20200801, end: 20200812
  2. CYTARABINE. [Suspect]
     Active Substance: CYTARABINE
     Indication: ACUTE MYELOID LEUKAEMIA
     Dosage: 118 MG, 1X/DAY
     Route: 042
     Dates: start: 20200731, end: 20200803
  3. BACTRIM [Concomitant]
     Active Substance: SULFAMETHOXAZOLE\TRIMETHOPRIM
     Dosage: 1.5 (97 OTHER (SPECIFY REASON AS FREE TEXT UNDER CODE ON FORM) (MONDAY WEDNESDAY FRIDAY)
     Dates: start: 20200724
  4. MITOXANTRONE HCL [Suspect]
     Active Substance: MITOXANTRONE HYDROCHLORIDE
     Indication: ACUTE MYELOID LEUKAEMIA
     Dosage: 12 MG/M2, 1X/DAY
     Route: 042
     Dates: start: 20200724, end: 20200727
  5. MITOXANTRONE HCL [Suspect]
     Active Substance: MITOXANTRONE HYDROCHLORIDE
     Dosage: 12 MG/M2, 1X/DAY
     Route: 042
     Dates: start: 20200831, end: 20200902
  6. CYTARABINE. [Suspect]
     Active Substance: CYTARABINE
     Dosage: 118 MG, 1X/DAY
     Route: 042
     Dates: start: 20200831, end: 20200902
  7. CYTARABINE. [Suspect]
     Active Substance: CYTARABINE
     Indication: ACUTE MYELOID LEUKAEMIA
     Dosage: 25 MG, 1X/DAY
     Route: 037
     Dates: start: 20200723, end: 20200723
  8. AMIKACINE [AMIKACIN] [Concomitant]
     Active Substance: AMIKACIN
     Indication: RHINOVIRUS INFECTION
     Dosage: 20 MG/KG, 1X/DAY
     Dates: start: 20200813, end: 20200815
  9. GEMTUZUMAB OZOGAMICIN [Suspect]
     Active Substance: GEMTUZUMAB OZOGAMICIN
     Indication: ACUTE MYELOID LEUKAEMIA
     Dosage: 1.77 MG, 1X/DAY
     Route: 042
     Dates: start: 20200727, end: 20200727
  10. CANCIDAS [Concomitant]
     Active Substance: CASPOFUNGIN ACETATE
     Indication: RHINOVIRUS INFECTION
     Dosage: 50 MG/M2, 1X/DAY
     Dates: start: 20200809, end: 20200820
  11. CYTARABINE. [Suspect]
     Active Substance: CYTARABINE
     Dosage: 25 MG, 1X/DAY
     Route: 037
     Dates: start: 20200831, end: 20200831
  12. MEROEM [Concomitant]
     Indication: RHINOVIRUS INFECTION
     Dosage: UNK
     Dates: start: 20200813, end: 20200820
  13. VANCOMYCINE [VANCOMYCIN] [Concomitant]
     Active Substance: VANCOMYCIN
     Indication: STREPTOCOCCAL BACTERAEMIA
     Dosage: 80 MG/KG, 1X/DAY
     Dates: start: 20200803, end: 20200820
  14. MITOXANTRONE HCL [Suspect]
     Active Substance: MITOXANTRONE HYDROCHLORIDE
     Dosage: 12 MG/M2, 1X/DAY
     Route: 042
     Dates: start: 20200731, end: 20200803

REACTIONS (3)
  - Febrile neutropenia [Not Recovered/Not Resolved]
  - Bacterial infection [Not Recovered/Not Resolved]
  - Hydrocephalus [Not Recovered/Not Resolved]

NARRATIVE: CASE EVENT DATE: 20200902
